FAERS Safety Report 23096696 (Version 1)
Quarter: 2023Q4

REPORT INFORMATION
  Report Type: Spontaneous
  Country: JP (occurrence: JP)
  Receive Date: 20231023
  Receipt Date: 20231023
  Transmission Date: 20240109
  Serious: Yes (Other)
  Sender: FDA-Public Use
  Company Number: JP-PFIZER INC-202300333525

PATIENT
  Age: 75 Year

DRUGS (1)
  1. LORBRENA [Suspect]
     Active Substance: LORLATINIB
     Indication: Lung neoplasm malignant
     Dosage: 100 MG, 1X/DAY

REACTIONS (3)
  - Electrocardiogram QT prolonged [Unknown]
  - Neoplasm progression [Unknown]
  - Hypercholesterolaemia [Unknown]
